FAERS Safety Report 19074020 (Version 1)
Quarter: 2021Q1

REPORT INFORMATION
  Report Type: Spontaneous
  Country: US (occurrence: US)
  Receive Date: 20210330
  Receipt Date: 20210330
  Transmission Date: 20210420
  Serious: Yes (Death, Life-Threatening, Hospitalization, Other)
  Sender: FDA-Public Use
  Company Number: US-BAYER-2021-112797

PATIENT
  Age: 49 Year
  Sex: Female

DRUGS (1)
  1. PARACETAMOL [Suspect]
     Active Substance: ACETAMINOPHEN

REACTIONS (10)
  - Analgesic drug level increased [Fatal]
  - Tachycardia [Fatal]
  - Acute hepatic failure [Fatal]
  - Metabolic acidosis [Fatal]
  - Lactic acidosis [Fatal]
  - Overdose [Fatal]
  - Drug-induced liver injury [Fatal]
  - Tachypnoea [Fatal]
  - Procalcitonin increased [Fatal]
  - Unresponsive to stimuli [Fatal]
